FAERS Safety Report 8380980-2 (Version None)
Quarter: 2012Q2

REPORT INFORMATION
  Report Type: 
  Country: None (occurrence: None)
  Receive Date: 20120523
  Receipt Date: 20120515
  Transmission Date: 20120825
  Serious: Yes (Other)
  Sender: FDA-Public Use
  Company Number: JP-VERTEX PHARMACEUTICALS INC.-AE-2012-006071

PATIENT
  Age: 64 Year
  Sex: Female

DRUGS (13)
  1. RIBAVIRIN [Concomitant]
     Route: 048
     Dates: start: 20120220
  2. PEGINTERFERON ALFA-2B [Concomitant]
     Route: 051
  3. TSUMURA JUZENTAIHOTO EXTRACT GRANULES FOR ETHICAL USE [Concomitant]
     Route: 048
  4. PEGINTERFERON ALFA-2B [Concomitant]
     Route: 051
     Dates: start: 20120220
  5. EVISTA [Concomitant]
     Route: 048
  6. RIBAVIRIN [Concomitant]
     Indication: HEPATITIS C
     Route: 048
     Dates: start: 20120130, end: 20120219
  7. EVAMYL [Concomitant]
     Route: 048
     Dates: end: 20120204
  8. ZETIA [Concomitant]
     Route: 048
  9. LOCHOLEST [Concomitant]
     Route: 048
  10. OLMESARTAN MEDOXOMIL [Concomitant]
     Route: 048
  11. TELAVIC (TELAPREVIR) [Suspect]
     Indication: HEPATITIS C
     Route: 048
     Dates: start: 20120130, end: 20120423
  12. PEGINTERFERON ALFA-2B [Concomitant]
     Indication: HEPATITIS C
     Route: 051
     Dates: start: 20120130, end: 20120219
  13. LOCHOLEST [Concomitant]
     Route: 048
     Dates: start: 20120316

REACTIONS (2)
  - PANCYTOPENIA [None]
  - ANAEMIA [None]
